FAERS Safety Report 5705793-9 (Version None)
Quarter: 2008Q2

REPORT INFORMATION
  Report Type: 
  Country: None (occurrence: None)
  Receive Date: 20080414
  Receipt Date: 20080414
  Transmission Date: 20081010
  Serious: Yes (Other)
  Sender: FDA-Public Use
  Company Number: None

PATIENT
  Age: 27 Year
  Sex: Female
  Weight: 83.9154 kg

DRUGS (1)
  1. MIRENA [Suspect]
     Indication: CONTRACEPTION
     Dosage: 1 5 YRS INTRA-UTERI
     Route: 015
     Dates: start: 20060914, end: 20080304

REACTIONS (13)
  - ABDOMINAL DISTENSION [None]
  - ANGER [None]
  - CRYING [None]
  - DECREASED APPETITE [None]
  - DEPRESSION [None]
  - FURUNCLE [None]
  - HYPERHIDROSIS [None]
  - LIBIDO DECREASED [None]
  - MENORRHAGIA [None]
  - NAUSEA [None]
  - VAGINAL DISCHARGE [None]
  - WEIGHT INCREASED [None]
  - WEIGHT LOSS POOR [None]
